FAERS Safety Report 19464480 (Version 2)
Quarter: 2021Q2

REPORT INFORMATION
  Report Type: Spontaneous
  Country: US (occurrence: US)
  Receive Date: 20210626
  Receipt Date: 20210626
  Transmission Date: 20210717
  Serious: Yes (Hospitalization, Other)
  Sender: FDA-Public Use
  Company Number: US-EPICPHARMA-US-2021EPCLIT00657

PATIENT
  Age: 33 Year
  Sex: Female

DRUGS (7)
  1. HYDROXYZINE HYDROCHLORIDE. [Suspect]
     Active Substance: HYDROXYZINE HYDROCHLORIDE
     Indication: PRODUCT USED FOR UNKNOWN INDICATION
     Route: 048
  2. DULOXETINE. [Suspect]
     Active Substance: DULOXETINE
     Indication: PRODUCT USED FOR UNKNOWN INDICATION
     Route: 048
  3. DICYCLOMINE HYDROCHLORIDE. [Suspect]
     Active Substance: DICYCLOMINE HYDROCHLORIDE
     Indication: PRODUCT USED FOR UNKNOWN INDICATION
     Route: 065
  4. FOMEPIZOLE. [Interacting]
     Active Substance: FOMEPIZOLE
     Indication: SUPPORTIVE CARE
     Route: 065
  5. ACETAMINOPHEN. [Suspect]
     Active Substance: ACETAMINOPHEN
     Indication: PRODUCT USED FOR UNKNOWN INDICATION
     Route: 048
  6. LINACLOTIDE [Suspect]
     Active Substance: LINACLOTIDE
     Indication: PRODUCT USED FOR UNKNOWN INDICATION
     Route: 048
  7. N?ACETYLCYSTEINE [Interacting]
     Active Substance: ACETYLCYSTEINE
     Indication: SUPPORTIVE CARE
     Route: 065

REACTIONS (5)
  - Acute hepatic failure [Recovered/Resolved]
  - Drug interaction [Recovered/Resolved]
  - Intentional product use issue [Unknown]
  - Toxicity to various agents [Recovered/Resolved]
  - Serotonin syndrome [Recovered/Resolved]
